FAERS Safety Report 14540481 (Version 2)
Quarter: 2018Q3

REPORT INFORMATION
  Report Type: Spontaneous
  Country: DE (occurrence: DE)
  Receive Date: 20180216
  Receipt Date: 20180808
  Transmission Date: 20181010
  Serious: Yes (Disabling, Other)
  Sender: FDA-Public Use
  Company Number: DE-GLAXOSMITHKLINE-DE2018GSK025225

PATIENT
  Age: 43 Year
  Sex: Male

DRUGS (1)
  1. CEFUROXIM?RATIOPHARM [Suspect]
     Active Substance: CEFUROXIME
     Indication: INFLUENZA LIKE ILLNESS
     Dosage: 12 DF, UNK (500 MG)
     Route: 048
     Dates: start: 2012

REACTIONS (1)
  - Tongue geographic [Recovered/Resolved with Sequelae]

NARRATIVE: CASE EVENT DATE: 2012
